FAERS Safety Report 23627627 (Version 1)
Quarter: 2024Q1

REPORT INFORMATION
  Report Type: Other
  Country: ES (occurrence: ES)
  Receive Date: 20240313
  Receipt Date: 20240313
  Transmission Date: 20240410
  Serious: Yes (Other)
  Sender: FDA-Public Use
  Company Number: ES-HARMONY BIOSCIENCES-2024HMY00414

PATIENT
  Sex: Female

DRUGS (7)
  1. PITOLISANT [Suspect]
     Active Substance: PITOLISANT
     Indication: Narcolepsy
     Dosage: 8.9 MG, 1X/DAY IN THE MORNING
     Route: 048
     Dates: start: 20231213, end: 20231221
  2. PITOLISANT [Suspect]
     Active Substance: PITOLISANT
     Indication: Cataplexy
  3. FLUOXETINE [Suspect]
     Active Substance: FLUOXETINE HYDROCHLORIDE
     Dosage: UNK
     Route: 065
  4. IBUPROFEN [Concomitant]
     Active Substance: IBUPROFEN
  5. OMEPRAZOLE [Concomitant]
     Active Substance: OMEPRAZOLE
  6. METHYLPHENIDATE [Concomitant]
     Active Substance: METHYLPHENIDATE
  7. ETORICOXIB [Concomitant]
     Active Substance: ETORICOXIB

REACTIONS (2)
  - Heavy menstrual bleeding [Recovered/Resolved]
  - Drug interaction [Unknown]

NARRATIVE: CASE EVENT DATE: 20231215
